FAERS Safety Report 5750936-4 (Version None)
Quarter: 2008Q2

REPORT INFORMATION
  Report Type: 
  Country: None (occurrence: None)
  Receive Date: 20080528
  Receipt Date: 20080523
  Transmission Date: 20081010
  Serious: Yes (Death)
  Sender: FDA-Public Use
  Company Number: AU-MERCK-0805AUS00188

PATIENT
  Age: 78 Year
  Sex: Male

DRUGS (6)
  1. LISINOPRIL [Suspect]
     Route: 048
  2. AZITHROMYCIN [Suspect]
     Indication: SEPSIS
     Route: 065
     Dates: end: 20070623
  3. CANDESARTAN CILEXETIL [Suspect]
     Route: 048
  4. CLARITHROMYCIN [Suspect]
     Route: 065
  5. COLCHICINE [Suspect]
     Indication: GOUT
     Route: 048
     Dates: start: 20070601, end: 20070621
  6. FUROSEMIDE [Suspect]
     Route: 065

REACTIONS (1)
  - RENAL FAILURE ACUTE [None]
